FAERS Safety Report 12376649 (Version 2)
Quarter: 2016Q2

REPORT INFORMATION
  Report Type: Report from Study
  Country: US (occurrence: US)
  Receive Date: 20160517
  Receipt Date: 20160517
  Transmission Date: 20160815
  Serious: No
  Sender: FDA-Public Use
  Company Number: US-MALLINCKRODT-T201502654

PATIENT
  Age: 55 Year
  Sex: Male

DRUGS (1)
  1. REPOSITORY CORTICOTROPIN INJECTION [Suspect]
     Active Substance: CORTICOTROPIN
     Indication: SARCOIDOSIS
     Dosage: 80 UNITS/2X A WEEK
     Route: 058
     Dates: start: 20150125, end: 20151013

REACTIONS (12)
  - Chest pain [Unknown]
  - Therapy cessation [Not Recovered/Not Resolved]
  - Pulmonary sarcoidosis [Unknown]
  - Parosmia [Unknown]
  - Tremor [Recovering/Resolving]
  - Pulmonary hypertension [Unknown]
  - Oesophageal pain [Unknown]
  - Diarrhoea [Unknown]
  - Irritability [Recovering/Resolving]
  - Fatigue [Recovering/Resolving]
  - Dyspnoea [Unknown]
  - Nasopharyngitis [Unknown]

NARRATIVE: CASE EVENT DATE: 201509
